FAERS Safety Report 15484176 (Version 1)
Quarter: 2018Q4

REPORT INFORMATION
  Report Type: Spontaneous
  Country: GB (occurrence: GB)
  Receive Date: 20181010
  Receipt Date: 20181010
  Transmission Date: 20190205
  Serious: Yes (Hospitalization, Other)
  Sender: FDA-Public Use
  Company Number: GB-PFIZER INC-2018404569

PATIENT
  Age: 49 Year
  Sex: Male

DRUGS (5)
  1. GENTAMICIN SULFATE. [Suspect]
     Active Substance: GENTAMICIN SULFATE
     Indication: PULMONARY TUBERCULOSIS
     Dosage: 120 MG, DAILY
     Dates: start: 196707
  2. PYRAZINAMIDE. [Suspect]
     Active Substance: PYRAZINAMIDE
     Indication: PULMONARY TUBERCULOSIS
     Dosage: 2 G, DAILY
     Dates: start: 196707, end: 196810
  3. GENTAMICIN SULFATE. [Suspect]
     Active Substance: GENTAMICIN SULFATE
     Dosage: 80 MG, DAILY
     Dates: end: 196810
  4. ETHAMBUTOL [Suspect]
     Active Substance: ETHAMBUTOL HYDROCHLORIDE
     Indication: PULMONARY TUBERCULOSIS
     Dosage: 1100 MG, DAILY
     Dates: start: 196707, end: 196810
  5. ISONIAZID. [Suspect]
     Active Substance: ISONIAZID
     Indication: PULMONARY TUBERCULOSIS
     Dosage: 300 MG, UNK
     Dates: start: 196707, end: 196810

REACTIONS (1)
  - Hyperaldosteronism [Recovering/Resolving]

NARRATIVE: CASE EVENT DATE: 196712
